FAERS Safety Report 20087041 (Version 3)
Quarter: 2021Q4

REPORT INFORMATION
  Report Type: Other
  Country: US (occurrence: None)
  Receive Date: 20211118
  Receipt Date: 20211215
  Transmission Date: 20220303
  Serious: Yes (Hospitalization)
  Sender: FDA-Public Use
  Company Number: US-ROCHE-2959436

PATIENT
  Age: 2 Year
  Sex: Female
  Weight: 10.7 kg

DRUGS (4)
  1. EVRYSDI [Suspect]
     Active Substance: RISDIPLAM
     Indication: Spinal muscular atrophy
     Dosage: DAILY AT THE SAME TIME AFTER A MEAL
     Route: 065
  2. EVRYSDI [Suspect]
     Active Substance: RISDIPLAM
     Indication: Spinal muscular atrophy
  3. SPINRAZA [Concomitant]
     Active Substance: NUSINERSEN
  4. ZOLGENSMA [Concomitant]
     Active Substance: ONASEMNOGENE ABEPARVOVEC-XIOI

REACTIONS (2)
  - Pneumonia [Not Recovered/Not Resolved]
  - Rhinovirus infection [Unknown]

NARRATIVE: CASE EVENT DATE: 20211112
